FAERS Safety Report 8397510-1 (Version None)
Quarter: 2012Q2

REPORT INFORMATION
  Report Type: 
  Country: None (occurrence: None)
  Receive Date: 20120529
  Receipt Date: 20120529
  Transmission Date: 20120825
  Serious: Yes (Hospitalization)
  Sender: FDA-Public Use
  Company Number: None

PATIENT
  Sex: Female
  Weight: 72.7 kg

DRUGS (2)
  1. PACLITAXEL [Suspect]
     Dosage: 160 MG
     Dates: end: 20120410
  2. CARBOPLATIN [Suspect]
     Dosage: 395 MG
     Dates: end: 20120327

REACTIONS (13)
  - ANAEMIA [None]
  - NAUSEA [None]
  - FALL [None]
  - EPISTAXIS [None]
  - WHITE BLOOD CELL COUNT DECREASED [None]
  - BLOOD CREATININE INCREASED [None]
  - THROMBOCYTOPENIA [None]
  - TOXICITY TO VARIOUS AGENTS [None]
  - SYNCOPE [None]
  - DEHYDRATION [None]
  - PRESYNCOPE [None]
  - DIZZINESS [None]
  - VOMITING [None]
